FAERS Safety Report 5747298-5 (Version None)
Quarter: 2008Q2

REPORT INFORMATION
  Report Type: 
  Country: None (occurrence: None)
  Receive Date: 20080523
  Receipt Date: 20080516
  Transmission Date: 20081010
  Serious: Yes (Hospitalization)
  Sender: FDA-Public Use
  Company Number: US-BRISTOL-MYERS SQUIBB COMPANY-14198535

PATIENT
  Age: 60 Year
  Sex: Female
  Weight: 54 kg

DRUGS (29)
  1. PACLITAXEL [Suspect]
     Indication: NON-SMALL CELL LUNG CANCER
     Dosage: ON DAY 1 0F 21 DAY CYCLE. INITIAL DOSE ON 26-SEP-2006.
     Route: 042
     Dates: start: 20060926, end: 20061205
  2. CARBOPLATIN [Suspect]
     Indication: NON-SMALL CELL LUNG CANCER
     Dosage: 1 DOSAGE FORM=AUC6.INITIAL DOSE ON 26-SEP-2005.
     Route: 042
     Dates: start: 20050926, end: 20061205
  3. PERCOCET [Suspect]
     Indication: BREAKTHROUGH PAIN
     Dosage: 1 DOSAGE FORM=5/325MG.
     Route: 048
     Dates: start: 20060419
  4. PF-3512676 [Suspect]
     Indication: NON-SMALL CELL LUNG CANCER
     Dosage: TAKEN ON DAY 8 AND 15 OF EVERY 21 DAYS.INITIAL DOSE ON 03-OCT-2006.
     Route: 058
     Dates: start: 20061003, end: 20061128
  5. DURAGESIC-100 [Suspect]
     Route: 061
     Dates: start: 20061017, end: 20061210
  6. CRESTOR [Concomitant]
     Route: 048
  7. ZYRTEC [Concomitant]
     Route: 048
  8. NEURONTIN [Concomitant]
     Route: 048
     Dates: start: 20030101
  9. PLAVIX [Concomitant]
     Route: 048
     Dates: start: 20020101
  10. ZOLOFT [Concomitant]
     Route: 048
     Dates: start: 20060901
  11. DEXAMETHASONE TAB [Concomitant]
     Route: 048
     Dates: start: 20060925
  12. PROMETHAZINE [Concomitant]
     Route: 048
     Dates: start: 20060926
  13. PROMETHAZINE [Concomitant]
     Route: 048
     Dates: start: 20060926
  14. ZOFRAN [Concomitant]
     Route: 048
     Dates: start: 20060926
  15. EMLA [Concomitant]
     Route: 061
     Dates: start: 20060926
  16. NEXIUM [Concomitant]
     Route: 048
     Dates: start: 20060901
  17. IBUPROFEN [Concomitant]
     Route: 048
     Dates: start: 20060901
  18. SYNTHROID [Concomitant]
     Route: 048
     Dates: start: 20061004
  19. SLOW-MAG [Concomitant]
     Route: 048
     Dates: start: 20061020
  20. XANAX [Concomitant]
     Route: 048
     Dates: start: 20061024
  21. MEGACE [Concomitant]
     Route: 048
     Dates: start: 20061024, end: 20061212
  22. LUNESTA [Concomitant]
     Route: 048
     Dates: start: 20061107
  23. REQUIP [Concomitant]
     Route: 048
     Dates: start: 20061030
  24. CARAFATE [Concomitant]
     Route: 048
     Dates: start: 20061024, end: 20061212
  25. EMEND [Concomitant]
     Dosage: 125 MG DAY1 PRIOR TO CHEMO EVERY 21 DAYS.
     Route: 048
     Dates: start: 20061107
  26. TAGAMET [Concomitant]
     Dosage: TAKEN ON DAY 1 EVERY 21 DAYS PRIOR TO CHEMO.
     Route: 042
     Dates: start: 20060926
  27. BENADRYL [Concomitant]
     Dosage: DAY 1 PRIOR TO CHEMO
     Route: 042
     Dates: start: 20060926
  28. ATIVAN [Concomitant]
     Dosage: DAY 1 PRIOR TO CHEMO
     Route: 042
     Dates: start: 20060926
  29. ALOXI [Concomitant]
     Dosage: DAY 1 PRIOR TO CHEMO
     Route: 042
     Dates: start: 20060926

REACTIONS (2)
  - METABOLIC ENCEPHALOPATHY [None]
  - PNEUMONIA [None]
